FAERS Safety Report 8449114-X (Version None)
Quarter: 2012Q2

REPORT INFORMATION
  Report Type: 
  Country: None (occurrence: None)
  Receive Date: 20120619
  Receipt Date: 20120611
  Transmission Date: 20120825
  Serious: Yes (Hospitalization)
  Sender: FDA-Public Use
  Company Number: US-JNJFOC-20120205317

PATIENT
  Sex: Female
  Weight: 67.3 kg

DRUGS (7)
  1. NEXIUM [Concomitant]
  2. HUMIRA [Concomitant]
     Dates: start: 20110818
  3. MULTI-VITAMINS [Concomitant]
  4. REMICADE [Suspect]
     Indication: IRRITABLE BOWEL SYNDROME
     Route: 042
  5. MESALAMINE [Concomitant]
     Route: 048
  6. ACETAMINOPHEN [Concomitant]
  7. MOTRIN [Concomitant]

REACTIONS (2)
  - ILEOSTOMY CLOSURE [None]
  - COLITIS ULCERATIVE [None]
